FAERS Safety Report 12825746 (Version 1)
Quarter: 2016Q4

REPORT INFORMATION
  Report Type: Spontaneous
  Country: US (occurrence: US)
  Receive Date: 20161007
  Receipt Date: 20161007
  Transmission Date: 20170207
  Serious: Yes (Life-Threatening, Hospitalization)
  Sender: FDA-Public Use
  Company Number: None

PATIENT
  Age: 64 Year
  Sex: Female
  Weight: 78.2 kg

DRUGS (22)
  1. VITAMIN D3 [Concomitant]
     Active Substance: CHOLECALCIFEROL
  2. GABAPENTIN. [Concomitant]
     Active Substance: GABAPENTIN
  3. KCL [Concomitant]
     Active Substance: POTASSIUM CHLORIDE
  4. COUMADIN [Suspect]
     Active Substance: WARFARIN SODIUM
     Indication: EMBOLIC STROKE
     Dates: start: 20160513, end: 20160930
  5. BUPROPION. [Concomitant]
     Active Substance: BUPROPION
  6. LOVENOX [Concomitant]
     Active Substance: ENOXAPARIN SODIUM
  7. OXYCODONE/ACETAMINOPHEN [Concomitant]
     Active Substance: ACETAMINOPHEN\OXYCODONE HYDROCHLORIDE
  8. SCOPOLAMINE [Concomitant]
     Active Substance: SCOPOLAMINE
  9. ALLOPURINOL. [Concomitant]
     Active Substance: ALLOPURINOL
  10. LEVOTHYROXINE. [Concomitant]
     Active Substance: LEVOTHYROXINE
  11. PROCHLORPERAZINE. [Concomitant]
     Active Substance: PROCHLORPERAZINE
  12. ASPIRIN. [Concomitant]
     Active Substance: ASPIRIN
  13. DULOXETINE. [Concomitant]
     Active Substance: DULOXETINE
  14. LORAZEPAM. [Concomitant]
     Active Substance: LORAZEPAM
  15. WARFARIN [Concomitant]
     Active Substance: WARFARIN
  16. DEXAMETHASONE. [Concomitant]
     Active Substance: DEXAMETHASONE
  17. DILTIAZEM. [Concomitant]
     Active Substance: DILTIAZEM
  18. DEXAMETHASONE. [Concomitant]
     Active Substance: DEXAMETHASONE
  19. TAXOL [Concomitant]
     Active Substance: PACLITAXEL
  20. COUMADIN [Suspect]
     Active Substance: WARFARIN SODIUM
     Indication: ATRIAL FIBRILLATION
     Dates: start: 20160513, end: 20160930
  21. LOVASTATIN. [Concomitant]
     Active Substance: LOVASTATIN
  22. PANTOPRAZOLE [Concomitant]
     Active Substance: PANTOPRAZOLE SODIUM

REACTIONS (4)
  - Seizure [None]
  - Sepsis [None]
  - Cerebral haemorrhage [None]
  - Anaemia [None]

NARRATIVE: CASE EVENT DATE: 20161002
